FAERS Safety Report 6036418-3 (Version None)
Quarter: 2009Q1

REPORT INFORMATION
  Report Type: 
  Country: None (occurrence: None)
  Receive Date: 20090113
  Receipt Date: 20090106
  Transmission Date: 20090719
  Serious: Yes (Death)
  Sender: FDA-Public Use
  Company Number: US-GILEAD-2009-0019720

PATIENT
  Sex: Female
  Weight: 77.18 kg

DRUGS (6)
  1. LETAIRIS [Suspect]
     Indication: PULMONARY ARTERIAL HYPERTENSION
     Route: 048
     Dates: start: 20080124
  2. COUMADIN [Concomitant]
  3. LASIX [Concomitant]
  4. NORVASC [Concomitant]
  5. MEDROL [Concomitant]
  6. POTASSIUM CHLORIDE [Concomitant]

REACTIONS (1)
  - DEATH [None]
